FAERS Safety Report 20571435 (Version 1)
Quarter: 2022Q1

REPORT INFORMATION
  Report Type: Spontaneous
  Country: US (occurrence: US)
  Receive Date: 20220309
  Receipt Date: 20220309
  Transmission Date: 20220423
  Serious: Yes (Hospitalization)
  Sender: FDA-Public Use
  Company Number: US-DENDREON PHARMACEUTICAL LLC-2022DEN000048

PATIENT

DRUGS (14)
  1. PROVENGE [Suspect]
     Active Substance: SIPULEUCEL-T
     Indication: Prostate cancer
     Dosage: DOSE 1
     Route: 042
     Dates: start: 20220114, end: 20220114
  2. PROVENGE [Suspect]
     Active Substance: SIPULEUCEL-T
     Dosage: DOSE 2
     Route: 042
     Dates: start: 20220225, end: 20220225
  3. VITAMIN D NOS [Concomitant]
     Active Substance: VITAMIN D NOS
  4. CALCIUM [Concomitant]
     Active Substance: CALCIUM
  5. LISINOPRIL [Concomitant]
     Active Substance: LISINOPRIL
  6. ATENOLOL [Concomitant]
     Active Substance: ATENOLOL
  7. ATORVASTATIN [Concomitant]
     Active Substance: ATORVASTATIN
  8. SIMVASTATIN [Concomitant]
     Active Substance: SIMVASTATIN
  9. ASPIRIN [Concomitant]
     Active Substance: ASPIRIN
  10. PEPCID [Concomitant]
     Active Substance: FAMOTIDINE
  11. FLOMAX [Concomitant]
     Active Substance: TAMSULOSIN HYDROCHLORIDE
  12. ACETAMINOPHEN [Concomitant]
     Active Substance: ACETAMINOPHEN
     Dosage: 1 GRAM, SINGLE
     Dates: start: 20220225, end: 20220225
  13. BENADRYL [Concomitant]
     Active Substance: DIPHENHYDRAMINE HYDROCHLORIDE
     Indication: Premedication
     Dosage: 50 MILLIGRAM, SINGLE
     Dates: start: 20220225, end: 20220225
  14. LOVENOX [Suspect]
     Active Substance: ENOXAPARIN SODIUM
     Indication: Thrombosis prophylaxis
     Dosage: UNK, UNKNOWN
     Dates: start: 202202, end: 202202

REACTIONS (6)
  - Systemic inflammatory response syndrome [Recovering/Resolving]
  - Infusion related reaction [Recovering/Resolving]
  - Malaise [Recovering/Resolving]
  - Eructation [Recovered/Resolved]
  - Diarrhoea [Recovered/Resolved]
  - Back pain [Recovering/Resolving]

NARRATIVE: CASE EVENT DATE: 20220225
